FAERS Safety Report 6331007-5 (Version None)
Quarter: 2009Q3

REPORT INFORMATION
  Report Type: 
  Country: None (occurrence: None)
  Receive Date: 20090827
  Receipt Date: 20090818
  Transmission Date: 20100115
  Serious: Yes (Hospitalization, Other)
  Sender: FDA-Public Use
  Company Number: A0786744A

PATIENT
  Sex: Female

DRUGS (9)
  1. ADVAIR HFA [Suspect]
     Indication: DRUG USE FOR UNKNOWN INDICATION
     Route: 055
  2. SEREVENT [Suspect]
     Indication: DRUG USE FOR UNKNOWN INDICATION
     Route: 055
  3. PAXIL [Suspect]
  4. ALBUTEROL [Concomitant]
  5. SPIRIVA [Concomitant]
  6. PREDNISONE TAB [Concomitant]
  7. PROVENTIL-HFA [Concomitant]
  8. SINGULAIR [Concomitant]
  9. ATROVENT [Concomitant]

REACTIONS (4)
  - ANXIETY [None]
  - ASTHMA [None]
  - CHRONIC OBSTRUCTIVE PULMONARY DISEASE [None]
  - HYPOXIA [None]
